FAERS Safety Report 17676594 (Version 2)
Quarter: 2020Q2

REPORT INFORMATION
  Report Type: Report from Study
  Country: US (occurrence: US)
  Receive Date: 20200416
  Receipt Date: 20200512
  Transmission Date: 20200714
  Serious: No
  Sender: FDA-Public Use
  Company Number: US-BIOVITRUM-2020US1545

PATIENT
  Age: 1 Year
  Sex: Female

DRUGS (1)
  1. KINERET [Suspect]
     Active Substance: ANAKINRA
     Indication: ESSENTIAL THROMBOCYTHAEMIA
     Route: 058
     Dates: start: 20200325

REACTIONS (7)
  - Diarrhoea [Unknown]
  - Rash [Unknown]
  - Off label use [Not Recovered/Not Resolved]
  - Injection site pain [Unknown]
  - Pruritus [Unknown]
  - Mass [Unknown]
  - Erythema [Unknown]

NARRATIVE: CASE EVENT DATE: 20200325
